FAERS Safety Report 19206256 (Version 1)
Quarter: 2021Q2

REPORT INFORMATION
  Report Type: Spontaneous
  Country: US (occurrence: US)
  Receive Date: 20210503
  Receipt Date: 20210503
  Transmission Date: 20210717
  Serious: No
  Sender: FDA-Public Use
  Company Number: US-XTTRIUM LABORATORIES, INC-2110121

PATIENT
  Age: 78 Year
  Sex: Male

DRUGS (2)
  1. SCRUB CARE EXIDINE ?4 CHG [Suspect]
     Active Substance: CHLORHEXIDINE GLUCONATE
     Indication: ROTATOR CUFF REPAIR
     Route: 003
     Dates: start: 20210203, end: 20210204
  2. OXYCONTIN [Suspect]
     Active Substance: OXYCODONE HYDROCHLORIDE
     Route: 048
     Dates: start: 20210204

REACTIONS (1)
  - Rash [Recovering/Resolving]

NARRATIVE: CASE EVENT DATE: 20210204
